FAERS Safety Report 5387766-1 (Version None)
Quarter: 2007Q3

REPORT INFORMATION
  Report Type: 
  Country: None (occurrence: None)
  Receive Date: 20070716
  Receipt Date: 20070712
  Transmission Date: 20080115
  Serious: No
  Sender: FDA-Public Use
  Company Number: DE-JNJFOC-20070605334

PATIENT
  Sex: Female
  Weight: 55 kg

DRUGS (3)
  1. HALDOL DECANOAT [Suspect]
     Indication: VOMITING
     Route: 042
  2. HALDOL DECANOAT [Suspect]
     Indication: NAUSEA
     Route: 042
  3. HALDOL [Concomitant]
     Indication: VOMITING

REACTIONS (1)
  - INCORRECT ROUTE OF DRUG ADMINISTRATION [None]
